FAERS Safety Report 7011065-5 (Version None)
Quarter: 2010Q3

REPORT INFORMATION
  Report Type: 
  Country: None (occurrence: None)
  Receive Date: 20100922
  Receipt Date: 20100922
  Transmission Date: 20110219
  Serious: Yes (Other)
  Sender: FDA-Public Use
  Company Number: None

PATIENT
  Age: 16 Year
  Sex: Male
  Weight: 70.3075 kg

DRUGS (2)
  1. CITALOPRAM HYDROBROMIDE [Suspect]
     Indication: AFFECTIVE DISORDER
     Dosage: 5 MG 1 TIME PER DAY PO
     Route: 048
     Dates: start: 20100807, end: 20100817
  2. CITALOPRAM HYDROBROMIDE [Suspect]
     Indication: ANXIETY
     Dosage: 5 MG 1 TIME PER DAY PO
     Route: 048
     Dates: start: 20100807, end: 20100817

REACTIONS (2)
  - NERVOUSNESS [None]
  - SUICIDAL IDEATION [None]
